FAERS Safety Report 5990636-9 (Version None)
Quarter: 2008Q4

REPORT INFORMATION
  Report Type: 
  Country: None (occurrence: None)
  Receive Date: 20081211
  Receipt Date: 20081204
  Transmission Date: 20090506
  Serious: Yes (Other)
  Sender: FDA-Public Use
  Company Number: D0059430A

PATIENT
  Age: 53 Year
  Sex: Female

DRUGS (4)
  1. REQUIP [Suspect]
     Indication: PARKINSON'S DISEASE
     Dosage: 2MG AT NIGHT
     Route: 048
     Dates: start: 20081023, end: 20081023
  2. AZILECT [Suspect]
     Indication: PARKINSON'S DISEASE
     Dosage: 1MG UNKNOWN
     Route: 048
     Dates: start: 20070814
  3. REQUIP [Concomitant]
     Indication: PARKINSON'S DISEASE
     Route: 048
     Dates: end: 20080101
  4. LAIF [Concomitant]
     Indication: DEPRESSION
     Route: 048
     Dates: start: 20071106

REACTIONS (8)
  - ABNORMAL DREAMS [None]
  - CONFUSIONAL STATE [None]
  - FEAR OF DEATH [None]
  - HALLUCINATION [None]
  - INAPPROPRIATE SCHEDULE OF DRUG ADMINISTRATION [None]
  - NAUSEA [None]
  - PERSONALITY CHANGE [None]
  - VOMITING [None]
